FAERS Safety Report 7426826-8 (Version None)
Quarter: 2011Q2

REPORT INFORMATION
  Report Type: 
  Country: None (occurrence: None)
  Receive Date: 20110420
  Receipt Date: 20110414
  Transmission Date: 20111010
  Serious: Yes (Death, Other)
  Sender: FDA-Public Use
  Company Number: SE-MILLENNIUM PHARMACEUTICALS, INC.-2011-01566

PATIENT

DRUGS (3)
  1. VELCADE [Suspect]
     Indication: MULTIPLE MYELOMA
     Dosage: UNK
  2. CYCLOPHOSPHAMIDE [Concomitant]
     Indication: MULTIPLE MYELOMA
  3. DEXAMETHASONE [Concomitant]
     Indication: MULTIPLE MYELOMA

REACTIONS (2)
  - DEATH [None]
  - PERIPHERAL SENSORIMOTOR NEUROPATHY [None]
